FAERS Safety Report 16836579 (Version 2)
Quarter: 2019Q4

REPORT INFORMATION
  Report Type: Spontaneous
  Country: TR (occurrence: TR)
  Receive Date: 20190921
  Receipt Date: 20191008
  Transmission Date: 20200122
  Serious: Yes (Death, Life-Threatening, Hospitalization, Other)
  Sender: FDA-Public Use
  Company Number: TR-AMGEN-TURSP2019038756

PATIENT
  Sex: Male

DRUGS (2)
  1. XGEVA [Suspect]
     Active Substance: DENOSUMAB
     Indication: METASTASES TO BONE
     Dosage: 120 UNK
     Route: 065
     Dates: start: 20190118, end: 20190118
  2. XGEVA [Suspect]
     Active Substance: DENOSUMAB
     Indication: PROSTATE CANCER

REACTIONS (14)
  - Septic shock [Fatal]
  - Pain [Unknown]
  - Hypotension [Fatal]
  - Organ failure [Unknown]
  - Blood calcium decreased [Unknown]
  - Muscle atrophy [Unknown]
  - Condition aggravated [Unknown]
  - Mobility decreased [Not Recovered/Not Resolved]
  - Blood phosphorus decreased [Unknown]
  - Hallucination [Unknown]
  - Weight decreased [Unknown]
  - Pneumonia [Fatal]
  - Joint dislocation [Unknown]
  - Bedridden [Unknown]

NARRATIVE: CASE EVENT DATE: 2019
